FAERS Safety Report 4379093-6 (Version None)
Quarter: 2004Q2

REPORT INFORMATION
  Report Type: 
  Country: None (occurrence: None)
  Receive Date: 20040610
  Receipt Date: 20040602
  Transmission Date: 20050107
  Serious: Yes (Life-Threatening)
  Sender: FDA-Public Use
  Company Number: 2004GB01329

PATIENT
  Age: 59 Year
  Sex: Male

DRUGS (3)
  1. LOSEC [Suspect]
     Indication: CHEST PAIN
     Dosage: 20 MG DIALY PO
     Route: 048
     Dates: start: 20040408, end: 20040410
  2. LOSEC [Suspect]
     Indication: OESOPHAGITIS
     Dosage: 20 MG DIALY PO
     Route: 048
     Dates: start: 20040408, end: 20040410
  3. VALPROIC ACID [Concomitant]

REACTIONS (1)
  - GRAND MAL CONVULSION [None]
